FAERS Safety Report 8992980 (Version 2)
Quarter: 2013Q1

REPORT INFORMATION
  Report Type: Spontaneous
  Country: TH (occurrence: TH)
  Receive Date: 20130102
  Receipt Date: 20130328
  Transmission Date: 20140127
  Serious: Yes (Death, Hospitalization)
  Sender: FDA-Public Use
  Company Number: PHHY2012TH121398

PATIENT
  Age: 77 Year
  Sex: Male

DRUGS (1)
  1. GLIVEC [Suspect]
     Indication: GASTROINTESTINAL STROMAL TUMOUR
     Dosage: 400 MG/DAY
     Route: 048

REACTIONS (2)
  - Cardiac arrest [Fatal]
  - Abdominal pain [Unknown]
